FAERS Safety Report 6566955-4 (Version None)
Quarter: 2010Q1

REPORT INFORMATION
  Report Type: 
  Country: None (occurrence: None)
  Receive Date: 20100202
  Receipt Date: 20100201
  Transmission Date: 20100710
  Serious: Yes (Death, Hospitalization, Other)
  Sender: FDA-Public Use
  Company Number: US-B.I. PHARMACEUTICALS,INC./RIDGEFIELD-2010-BP-00429BP

PATIENT
  Sex: Male

DRUGS (10)
  1. SPIRIVA [Suspect]
     Indication: CHRONIC OBSTRUCTIVE PULMONARY DISEASE
     Dosage: 18 MCG
     Route: 055
     Dates: start: 20090801, end: 20091026
  2. SPIRIVA [Suspect]
     Indication: EMPHYSEMA
  3. COUMADIN [Concomitant]
     Dosage: 3 MG
  4. DIGOXIN [Concomitant]
     Dosage: 0.125 MG
  5. ATENOLOL [Concomitant]
     Dosage: 25 MG
  6. PLAVIX [Concomitant]
     Dosage: 75 MG
  7. FENOFIBRATE [Concomitant]
     Dosage: 134 MG
  8. HYDROCHLOROTHIAZIDE [Concomitant]
     Dosage: 25 MG
  9. FLOMAX [Concomitant]
     Route: 048
  10. PROVENTIL [Concomitant]

REACTIONS (7)
  - APHONIA [None]
  - CHEST X-RAY ABNORMAL [None]
  - CHRONIC OBSTRUCTIVE PULMONARY DISEASE [None]
  - DYSPNOEA [None]
  - NON-SMALL CELL LUNG CANCER [None]
  - OEDEMA PERIPHERAL [None]
  - TUMOUR COMPRESSION [None]
